FAERS Safety Report 25658340 (Version 3)
Quarter: 2025Q4

REPORT INFORMATION
  Report Type: Spontaneous
  Country: BR (occurrence: BR)
  Receive Date: 20250808
  Receipt Date: 20251007
  Transmission Date: 20260118
  Serious: Yes (Other)
  Sender: SANDOZ
  Company Number: BR-002147023-NVSC2022BR150169

PATIENT
  Sex: Female
  Weight: 74 kg

DRUGS (12)
  1. FULVESTRANT [Suspect]
     Active Substance: FULVESTRANT
     Dosage: 1 DOSAGE FORM, 28D
     Route: 030
     Dates: start: 202203
  2. FULVESTRANT [Suspect]
     Active Substance: FULVESTRANT
     Indication: Breast cancer
     Dosage: 2 DOSAGE FORM, Q4W
     Route: 030
     Dates: start: 20220315
  3. FULVESTRANT [Suspect]
     Active Substance: FULVESTRANT
     Indication: Metastases to bone
     Dosage: UNK
     Route: 030
  4. FULVESTRANT [Suspect]
     Active Substance: FULVESTRANT
     Dosage: 1 DF 1 DOSAGE FORM, 28D
     Route: 030
     Dates: start: 202203
  5. FULVESTRANT [Suspect]
     Active Substance: FULVESTRANT
     Indication: Metastases to bone
     Dosage: 2 DF, Q4W
     Route: 030
     Dates: start: 20220315
  6. FULVESTRANT [Suspect]
     Active Substance: FULVESTRANT
     Indication: Breast cancer
     Dosage: UNK
     Route: 030
  7. KISQALI [Suspect]
     Active Substance: RIBOCICLIB SUCCINATE
     Indication: Metastases to bone
     Dosage: 3 DOSAGE FORM, QD
     Route: 048
     Dates: start: 20220315
  8. KISQALI [Suspect]
     Active Substance: RIBOCICLIB SUCCINATE
     Indication: Breast cancer
     Dosage: 3 DOSAGE FORM
     Route: 048
     Dates: start: 20220315
  9. GOSERELIN [Suspect]
     Active Substance: GOSERELIN
     Indication: Menopause
     Dosage: 1 DOSAGE FORM (EVERY 3 MONTHS)
     Route: 058
     Dates: start: 20220315
  10. GOSERELIN [Suspect]
     Active Substance: GOSERELIN
     Dosage: 10.8 MG, Q3MO (INJECTABLE SOLUTION)
     Route: 058
     Dates: start: 202203
  11. XGEVA [Concomitant]
     Active Substance: DENOSUMAB
     Indication: Metastases to bone
     Dosage: 1 DOSAGE FORM, Q4W
     Route: 058
     Dates: start: 20220315, end: 2024
  12. XGEVA [Concomitant]
     Active Substance: DENOSUMAB
     Indication: Breast cancer
     Dosage: UNK, QMO
     Route: 058
     Dates: start: 202203

REACTIONS (28)
  - Metastases to bone [Recovering/Resolving]
  - Metastases to spine [Unknown]
  - Breast mass [Recovered/Resolved]
  - Vomiting [Recovered/Resolved]
  - Positron emission tomogram abnormal [Recovered/Resolved]
  - Emotional disorder [Recovering/Resolving]
  - Mobility decreased [Recovering/Resolving]
  - Mental disorder [Recovering/Resolving]
  - Skin depigmentation [Unknown]
  - Fluid retention [Unknown]
  - Hyperphagia [Unknown]
  - Feeling of body temperature change [Unknown]
  - Skin disorder [Unknown]
  - Vitiligo [Recovering/Resolving]
  - Dry skin [Unknown]
  - Pain of skin [Not Recovered/Not Resolved]
  - Madarosis [Recovered/Resolved]
  - Weight increased [Recovering/Resolving]
  - Anxiety [Unknown]
  - Pain [Recovering/Resolving]
  - Dizziness [Recovered/Resolved]
  - Alopecia [Recovering/Resolving]
  - Fatigue [Recovering/Resolving]
  - Hot flush [Not Recovered/Not Resolved]
  - Nausea [Recovered/Resolved]
  - Nasopharyngitis [Recovered/Resolved]
  - Nasopharyngitis [Not Recovered/Not Resolved]
  - Asthenia [Recovered/Resolved]

NARRATIVE: CASE EVENT DATE: 20220101
